FAERS Safety Report 25979795 (Version 1)
Quarter: 2025Q4

REPORT INFORMATION
  Report Type: Spontaneous
  Country: KR (occurrence: KR)
  Receive Date: 20251030
  Receipt Date: 20251030
  Transmission Date: 20260117
  Serious: Yes (Other)
  Sender: JOHNSON AND JOHNSON
  Company Number: KR-JNJFOC-20251018781

PATIENT
  Age: 64 Year
  Sex: Female
  Weight: 50 kg

DRUGS (6)
  1. AMIVANTAMAB [Suspect]
     Active Substance: AMIVANTAMAB
     Indication: Non-small cell lung cancer
     Dosage: CYCLE 1 WEEK 1
     Route: 065
  2. AMIVANTAMAB [Suspect]
     Active Substance: AMIVANTAMAB
     Dosage: CYCLE 1  WEEK 1
     Route: 065
  3. AMIVANTAMAB [Suspect]
     Active Substance: AMIVANTAMAB
     Dosage: CYCLE 1  WEEK 2, 3 AND 4
     Route: 065
  4. AMIVANTAMAB [Suspect]
     Active Substance: AMIVANTAMAB
     Dosage: CYCLE 2; WEEK 1 AND WEEK 3
     Route: 065
  5. AMIVANTAMAB [Suspect]
     Active Substance: AMIVANTAMAB
     Dosage: CYCLE 3; WEEK 1 AND WEEK 3
     Route: 065
  6. AMIVANTAMAB [Suspect]
     Active Substance: AMIVANTAMAB
     Dosage: CYCLE 4: WEEK 1
     Route: 065

REACTIONS (2)
  - Shunt infection [Unknown]
  - Diarrhoea [Unknown]
